FAERS Safety Report 15733096 (Version 1)
Quarter: 2018Q4

REPORT INFORMATION
  Report Type: Spontaneous
  Country: CN (occurrence: CN)
  Receive Date: 20181218
  Receipt Date: 20181218
  Transmission Date: 20190205
  Serious: Yes (Other)
  Sender: FDA-Public Use
  Company Number: CN-ROCHE-2230779

PATIENT
  Age: 56 Year
  Sex: Male

DRUGS (32)
  1. METHOTREXATE. [Concomitant]
     Active Substance: METHOTREXATE
     Dosage: 1-3 G/M2
     Route: 037
     Dates: start: 20151112
  2. CYTARABINE. [Concomitant]
     Active Substance: CYTARABINE
     Route: 041
     Dates: start: 20170628, end: 20170629
  3. CALCIUM FOLINATE [Concomitant]
     Active Substance: LEUCOVORIN CALCIUM
     Indication: NON-HODGKIN^S LYMPHOMA
     Route: 065
     Dates: start: 20150911
  4. TEMOZOLOMIDE. [Concomitant]
     Active Substance: TEMOZOLOMIDE
     Dosage: FROM DAY 1 TO DAY 5
     Route: 065
     Dates: start: 20160310
  5. MABTHERA [Suspect]
     Active Substance: RITUXIMAB
     Indication: NON-HODGKIN^S LYMPHOMA
     Dosage: ON DAY 1
     Route: 065
     Dates: start: 20131017, end: 20140311
  6. METHOTREXATE. [Concomitant]
     Active Substance: METHOTREXATE
     Dosage: 1-3 G/M2
     Route: 037
     Dates: start: 20150911
  7. METHOTREXATE. [Concomitant]
     Active Substance: METHOTREXATE
     Route: 041
     Dates: start: 20180713
  8. LENALIDOMIDE [Concomitant]
     Active Substance: LENALIDOMIDE
     Indication: NON-HODGKIN^S LYMPHOMA
     Route: 048
     Dates: start: 20160823
  9. DOXORUBICIN [Concomitant]
     Active Substance: DOXORUBICIN
     Indication: NON-HODGKIN^S LYMPHOMA
     Dosage: ON DAY 2
     Route: 065
     Dates: start: 20131017, end: 20140311
  10. METHOTREXATE. [Concomitant]
     Active Substance: METHOTREXATE
     Dosage: 1-3 G/M2
     Route: 037
     Dates: start: 20151009
  11. CALCIUM FOLINATE [Concomitant]
     Active Substance: LEUCOVORIN CALCIUM
     Route: 065
     Dates: start: 20151216
  12. METHOTREXATE. [Concomitant]
     Active Substance: METHOTREXATE
     Dosage: ON DAY 1
     Route: 037
     Dates: start: 20131017, end: 20140311
  13. METHOTREXATE. [Concomitant]
     Active Substance: METHOTREXATE
     Dosage: 1-3 G/M2
     Route: 065
     Dates: start: 20151216
  14. DEXAMETHASONE. [Concomitant]
     Active Substance: DEXAMETHASONE
     Indication: NON-HODGKIN^S LYMPHOMA
     Dosage: ON DAY 1 AND DAY 7
     Route: 037
     Dates: start: 20131017, end: 20140311
  15. CYTARABINE. [Concomitant]
     Active Substance: CYTARABINE
     Indication: NON-HODGKIN^S LYMPHOMA
     Dosage: ON DAY 7
     Route: 037
     Dates: start: 20131017, end: 20140311
  16. CALCIUM FOLINATE [Concomitant]
     Active Substance: LEUCOVORIN CALCIUM
     Route: 065
     Dates: start: 20151009
  17. METHOTREXATE. [Concomitant]
     Active Substance: METHOTREXATE
     Dosage: 1-3 G/M2
     Route: 037
     Dates: start: 20160123
  18. CALCIUM FOLINATE [Concomitant]
     Active Substance: LEUCOVORIN CALCIUM
     Route: 065
     Dates: start: 20151112
  19. TEMOZOLOMIDE. [Concomitant]
     Active Substance: TEMOZOLOMIDE
     Dosage: FROM DAY 1 TO DAY 5
     Route: 065
     Dates: start: 20160508
  20. CYTARABINE. [Concomitant]
     Active Substance: CYTARABINE
     Route: 065
     Dates: start: 20150911
  21. CYTARABINE. [Concomitant]
     Active Substance: CYTARABINE
     Route: 065
     Dates: start: 20151216
  22. TEMOZOLOMIDE. [Concomitant]
     Active Substance: TEMOZOLOMIDE
     Indication: NON-HODGKIN^S LYMPHOMA
     Dosage: FROM DAY 1 TO DAY 5
     Route: 065
     Dates: start: 20160211
  23. TEMOZOLOMIDE. [Concomitant]
     Active Substance: TEMOZOLOMIDE
     Dosage: FROM DAY 1 TO DAY 5
     Route: 065
     Dates: start: 20160607
  24. METHOTREXATE. [Concomitant]
     Active Substance: METHOTREXATE
     Route: 041
     Dates: start: 20170627
  25. CYTARABINE. [Concomitant]
     Active Substance: CYTARABINE
     Route: 065
     Dates: start: 20151112
  26. CYTARABINE. [Concomitant]
     Active Substance: CYTARABINE
     Route: 065
     Dates: start: 20160123
  27. VINCRISTINE [Concomitant]
     Active Substance: VINCRISTINE
     Indication: NON-HODGKIN^S LYMPHOMA
     Dosage: ON DAY 2
     Route: 065
     Dates: start: 20131017, end: 20140311
  28. CYCLOPHOSPHAMIDE. [Concomitant]
     Active Substance: CYCLOPHOSPHAMIDE
     Indication: NON-HODGKIN^S LYMPHOMA
     Dosage: ON DAY 2
     Route: 065
     Dates: start: 20131017, end: 20140311
  29. PREDNISONE. [Concomitant]
     Active Substance: PREDNISONE
     Indication: NON-HODGKIN^S LYMPHOMA
     Dosage: FROM DAY 2 TO DAY 6
     Route: 065
     Dates: start: 20131017, end: 20140311
  30. CYTARABINE. [Concomitant]
     Active Substance: CYTARABINE
     Route: 065
     Dates: start: 20151009
  31. CALCIUM FOLINATE [Concomitant]
     Active Substance: LEUCOVORIN CALCIUM
     Route: 065
     Dates: start: 20160123
  32. TEMOZOLOMIDE. [Concomitant]
     Active Substance: TEMOZOLOMIDE
     Dosage: FROM DAY 1 TO DAY 5
     Route: 065
     Dates: start: 20160407

REACTIONS (1)
  - Intracranial pressure increased [Unknown]

NARRATIVE: CASE EVENT DATE: 20150803
